FAERS Safety Report 5203248-1 (Version None)
Quarter: 2006Q4

REPORT INFORMATION
  Report Type: 
  Country: None (occurrence: None)
  Receive Date: 20061016
  Receipt Date: 20060405
  Transmission Date: 20070319
  Serious: Yes (Other)
  Sender: FDA-Public Use
  Company Number: 2006031620

PATIENT
  Age: 49 Year
  Sex: Male

DRUGS (10)
  1. NEURONTIN [Suspect]
     Indication: PAIN IN EXTREMITY
     Dosage: 2700 MG (900 MG, 3 IN 1 D)
  2. LEXAPRO [Concomitant]
  3. NEXIUM (ESOMEPRFAZOLE) [Concomitant]
  4. KLONOPIN [Concomitant]
  5. ACTOS [Concomitant]
  6. HUMULIN N [Concomitant]
  7. HUMULIN R [Concomitant]
  8. PERCOCET [Concomitant]
  9. PHENERGAN [Concomitant]
  10. LOTREL [Concomitant]

REACTIONS (3)
  - ANGER [None]
  - DEPRESSED MOOD [None]
  - SUICIDAL IDEATION [None]
